FAERS Safety Report 7405790-1 (Version None)
Quarter: 2011Q2

REPORT INFORMATION
  Report Type: 
  Country: None (occurrence: None)
  Receive Date: 20110411
  Receipt Date: 20110406
  Transmission Date: 20111010
  Serious: Yes (Other)
  Sender: FDA-Public Use
  Company Number: US-GENZYME-FLUD-1001032

PATIENT

DRUGS (8)
  1. FLUDARA [Suspect]
     Indication: HAEMATOLOGICAL MALIGNANCY
     Dosage: 30 MG/M2, QD ON DAYS -7 THROUGH -3
     Route: 042
  2. BUSULFAN [Suspect]
     Indication: BONE MARROW CONDITIONING REGIMEN
  3. METHOTREXATE [Concomitant]
     Indication: PROPHYLAXIS AGAINST GRAFT VERSUS HOST DISEASE
     Dosage: 5 MG/M2, UNK
     Route: 042
  4. TACROLIMUS [Concomitant]
     Indication: PROPHYLAXIS AGAINST GRAFT VERSUS HOST DISEASE
     Dosage: UNK STARTING DAY -1
  5. GRANULOCYTE COLONY STIMULATING FACTOR [Suspect]
     Indication: BONE MARROW CONDITIONING REGIMEN
     Dosage: UNK ON DAY 0
     Route: 065
  6. GRANULOCYTE COLONY STIMULATING FACTOR [Suspect]
     Indication: HAEMATOLOGICAL MALIGNANCY
     Dosage: 5 MCG/KG, QD STARTING DAY +7
     Route: 065
  7. FLUDARA [Suspect]
     Indication: BONE MARROW CONDITIONING REGIMEN
  8. BUSULFAN [Suspect]
     Indication: HAEMATOLOGICAL MALIGNANCY
     Dosage: 0.8 MG/KG Q 6 HOURS ON DAYS -4 AND -3
     Route: 042

REACTIONS (2)
  - CHRONIC GRAFT VERSUS HOST DISEASE [None]
  - ACUTE GRAFT VERSUS HOST DISEASE [None]
